FAERS Safety Report 24248388 (Version 1)
Quarter: 2024Q3

REPORT INFORMATION
  Report Type: Spontaneous
  Country: ZA (occurrence: ZA)
  Receive Date: 20240826
  Receipt Date: 20240826
  Transmission Date: 20241017
  Serious: Yes (Hospitalization, Other)
  Sender: MACLEODS
  Company Number: ZA-MACLEODS PHARMA-MAC2024048885

PATIENT

DRUGS (6)
  1. HYDROCHLOROTHIAZIDE\VALSARTAN [Suspect]
     Active Substance: HYDROCHLOROTHIAZIDE\VALSARTAN
     Indication: Hypertension
     Dosage: 80/12.5 MG TAKE ONE TABLET IN THE MORNING
     Route: 048
  2. ACETAMINOPHEN\CODEINE\IBUPROFEN [Suspect]
     Active Substance: ACETAMINOPHEN\CODEINE\IBUPROFEN
     Indication: Product used for unknown indication
     Dosage: TAKE ONE TABLET TWICE A DAY
     Route: 048
  3. MUPIROCIN [Suspect]
     Active Substance: MUPIROCIN
     Indication: Product used for unknown indication
     Dosage: 20 MG AS DIRECTED
     Route: 065
  4. OMEPRAZOLE [Suspect]
     Active Substance: OMEPRAZOLE
     Indication: Ulcer
     Dosage: 20 MG TAKE ONE CAPSULE IN THE MORNING
     Route: 048
  5. IBUPROFEN\PSEUDOEPHEDRINE HYDROCHLORIDE [Suspect]
     Active Substance: IBUPROFEN\PSEUDOEPHEDRINE HYDROCHLORIDE
     Indication: Product used for unknown indication
     Dosage: AS DIRECTED
     Route: 048
  6. HYDROCHLOROTHIAZIDE\VALSARTAN [Suspect]
     Active Substance: HYDROCHLOROTHIAZIDE\VALSARTAN
     Indication: Hypertension
     Dosage: 80/12.5 MG TAKE ONE TABLET IN THE MORNING
     Route: 048

REACTIONS (2)
  - Melanocytic naevus [Unknown]
  - Skin cancer [Unknown]
